FAERS Safety Report 7404841-8 (Version None)
Quarter: 2011Q2

REPORT INFORMATION
  Report Type: 
  Country: None (occurrence: None)
  Receive Date: 20110411
  Receipt Date: 20110328
  Transmission Date: 20111010
  Serious: Yes (Other)
  Sender: FDA-Public Use
  Company Number: US-JNJFOC-20061006820

PATIENT
  Sex: Male

DRUGS (6)
  1. DEPAKOTE [Suspect]
     Indication: MOOD SWINGS
  2. SEROQUEL [Concomitant]
     Indication: AFFECTIVE DISORDER
  3. RISPERDAL [Suspect]
     Indication: PSYCHOTIC DISORDER
  4. RISPERDAL [Suspect]
     Indication: DEPRESSION
  5. DEPAKOTE [Suspect]
     Indication: DEPRESSION
  6. ZYPREXA [Suspect]
     Indication: ILL-DEFINED DISORDER

REACTIONS (6)
  - ABDOMINAL DISCOMFORT [None]
  - WEIGHT INCREASED [None]
  - BLOOD CHOLESTEROL INCREASED [None]
  - TYPE 2 DIABETES MELLITUS [None]
  - DRUG INEFFECTIVE [None]
  - SEDATION [None]
